FAERS Safety Report 15306789 (Version 1)
Quarter: 2018Q3

REPORT INFORMATION
  Report Type: Report from Study
  Country: US (occurrence: US)
  Receive Date: 20180822
  Receipt Date: 20180822
  Transmission Date: 20181010
  Serious: Yes (Hospitalization, Other)
  Sender: FDA-Public Use
  Company Number: US-TEVA-2018-US-897100

PATIENT
  Sex: Female
  Weight: 67.7 kg

DRUGS (9)
  1. AUSTEDO [Suspect]
     Active Substance: DEUTETRABENAZINE
     Indication: TARDIVE DYSKINESIA
     Dosage: NEW/TITRATING PATIENT
     Route: 065
     Dates: start: 20180504, end: 20180519
  2. AUSTEDO [Suspect]
     Active Substance: DEUTETRABENAZINE
     Dosage: 12 MILLIGRAM DAILY; 6 MG TABS TWICE A DAY
     Route: 065
     Dates: start: 20180520, end: 20180603
  3. GEODON 60 MG CAPS [Concomitant]
     Dosage: 120 MILLIGRAM DAILY; TAKE 120 MG BY MOUTH AT BEDTIME
     Route: 048
  4. CALCIUM + D OR [Concomitant]
     Dosage: TAKE BY MOUTH
     Route: 048
  5. AUSTEDO [Suspect]
     Active Substance: DEUTETRABENAZINE
     Dosage: 24 MILLIGRAM DAILY; CURRENT REGIMEN:  NOW UP TO ONE?12 MG TWICE A DAY
     Route: 065
     Dates: start: 20180520, end: 20180603
  6. VALIUM 10 MG TABLET [Concomitant]
     Dosage: 40 MILLIGRAM DAILY; TAKE 20 MG BY MOUTH TWO TIMES DAILY
     Route: 048
  7. NEURONTIN 600 MG TABLET [Concomitant]
     Dosage: 600 MILLIGRAM DAILY; TAKE 600 MG BY MOUTH DAILY
     Route: 048
  8. AUSTEDO [Suspect]
     Active Substance: DEUTETRABENAZINE
     Dosage: 24 MILLIGRAM DAILY; 12 MG TWICE DAILY
     Route: 065
     Dates: start: 20180520, end: 20180603
  9. MULTIVITAMIN ADULT OR [Concomitant]
     Dosage: TAKE BY MOUTH
     Route: 048

REACTIONS (9)
  - Fatigue [Unknown]
  - Dizziness [Not Recovered/Not Resolved]
  - Dry mouth [Unknown]
  - Parkinsonism [Unknown]
  - Fall [Recovered/Resolved with Sequelae]
  - Dysarthria [Not Recovered/Not Resolved]
  - Loss of consciousness [Recovered/Resolved with Sequelae]
  - Balance disorder [Unknown]
  - Memory impairment [Not Recovered/Not Resolved]
